FAERS Safety Report 9924282 (Version 1)
Quarter: 2014Q1

REPORT INFORMATION
  Report Type: Spontaneous
  Country: FR (occurrence: FR)
  Receive Date: 20140226
  Receipt Date: 20140226
  Transmission Date: 20141002
  Serious: Yes (Other)
  Sender: FDA-Public Use
  Company Number: FR-BRISTOL-MYERS SQUIBB COMPANY-20219952

PATIENT
  Age: 66 Year
  Sex: Female

DRUGS (4)
  1. REYATAZ CAPS 300 MG [Suspect]
     Indication: HIV INFECTION
     Dates: start: 20041020, end: 201305
  2. NORVIR [Suspect]
     Indication: HIV INFECTION
     Dates: start: 20041020
  3. VIREAD [Suspect]
     Indication: HIV INFECTION
     Dates: start: 20041020
  4. COTAREG [Concomitant]
     Dates: start: 200610

REACTIONS (4)
  - Nephrolithiasis [Not Recovered/Not Resolved]
  - Renal failure [Not Recovered/Not Resolved]
  - Blood alkaline phosphatase increased [Not Recovered/Not Resolved]
  - Hyperbilirubinaemia [Not Recovered/Not Resolved]
